FAERS Safety Report 25902126 (Version 2)
Quarter: 2025Q4

REPORT INFORMATION
  Report Type: Spontaneous
  Country: US (occurrence: US)
  Receive Date: 20251009
  Receipt Date: 20251028
  Transmission Date: 20260117
  Serious: Yes (Other)
  Sender: TEVA
  Company Number: US-TEVA-VS-3377870

PATIENT
  Age: 41 Year
  Sex: Female

DRUGS (11)
  1. CLONAZEPAM [Suspect]
     Active Substance: CLONAZEPAM
     Indication: Major depression
     Route: 065
  2. SEMAGLUTIDE [Interacting]
     Active Substance: SEMAGLUTIDE
     Indication: Weight increased
     Dosage: 0.25MG/0.5 ML AUTO INJECTIONS
     Route: 065
  3. PRAZOSIN [Suspect]
     Active Substance: PRAZOSIN
     Indication: Major depression
     Route: 065
  4. LURASIDONE [Suspect]
     Active Substance: LURASIDONE
     Indication: Major depression
     Route: 065
  5. GABAPENTIN [Suspect]
     Active Substance: GABAPENTIN
     Indication: Major depression
     Route: 065
  6. PROPRANOLOL [Suspect]
     Active Substance: PROPRANOLOL HYDROCHLORIDE
     Indication: Major depression
     Route: 065
  7. QUETIAPINE [Suspect]
     Active Substance: QUETIAPINE
     Indication: Major depression
     Route: 065
  8. FLUOXETINE [Suspect]
     Active Substance: FLUOXETINE HYDROCHLORIDE
     Indication: Major depression
     Route: 065
  9. LITHIUM [Interacting]
     Active Substance: LITHIUM
     Indication: Major depression
     Dosage: EXTENDED-RELEASE THERAPY
     Route: 048
  10. LITHIUM [Interacting]
     Active Substance: LITHIUM
     Indication: Major depression
     Dosage: EXTENDED-RELEASE THERAPY
     Route: 048
  11. LITHIUM [Interacting]
     Active Substance: LITHIUM
     Indication: Major depression
     Dosage: EXTENDED-RELEASE THERAPY
     Route: 048

REACTIONS (12)
  - Eating disorder [Unknown]
  - Tremor [Recovering/Resolving]
  - Electrocardiogram T wave inversion [Recovering/Resolving]
  - Toxicity to various agents [Recovering/Resolving]
  - Dizziness [Recovering/Resolving]
  - Irritability [Recovering/Resolving]
  - Muscle twitching [Recovering/Resolving]
  - Tremor [Recovering/Resolving]
  - Weight increased [Unknown]
  - Drug interaction [Unknown]
  - Gait disturbance [Recovering/Resolving]
  - Nausea [Recovering/Resolving]
